FAERS Safety Report 7142384-X (Version None)
Quarter: 2010Q4

REPORT INFORMATION
  Report Type: 
  Country: None (occurrence: None)
  Receive Date: 20101207
  Receipt Date: 20090903
  Transmission Date: 20110411
  Serious: Yes (Other)
  Sender: FDA-Public Use
  Company Number: FR-CELGENEUS-056-21880-10082096

PATIENT
  Age: 56 Year
  Sex: Female

DRUGS (2)
  1. REVLIMID [Suspect]
     Route: 048
     Dates: start: 20080801, end: 20080807
  2. ESTRADIOL [Concomitant]
     Route: 065

REACTIONS (1)
  - MACULAR OEDEMA [None]
